FAERS Safety Report 23917870 (Version 3)
Quarter: 2025Q2

REPORT INFORMATION
  Report Type: Spontaneous
  Country: CN (occurrence: CN)
  Receive Date: 20240530
  Receipt Date: 20250608
  Transmission Date: 20250717
  Serious: Yes (Life-Threatening, Hospitalization)
  Sender: COHERUS
  Company Number: CN-SHANGHAI JUNSHI BIOSCIENCES CO., LTD.-CN2024010180

PATIENT

DRUGS (1)
  1. TORIPALIMAB [Suspect]
     Active Substance: TORIPALIMAB
     Indication: Thymic cancer metastatic

REACTIONS (3)
  - Immune-mediated myocarditis [Recovering/Resolving]
  - Myositis [Recovering/Resolving]
  - Off label use [Unknown]
